FAERS Safety Report 15232504 (Version 2)
Quarter: 2018Q3

REPORT INFORMATION
  Report Type: Spontaneous
  Country: US (occurrence: US)
  Receive Date: 20180802
  Receipt Date: 20180904
  Transmission Date: 20181010
  Serious: No
  Sender: FDA-Public Use
  Company Number: US-BAYER-2018-140074

PATIENT
  Age: 38 Year
  Sex: Female

DRUGS (7)
  1. OXYCODON [Concomitant]
     Active Substance: OXYCODONE
     Dosage: UNK
  2. IRON [Concomitant]
     Active Substance: IRON
     Dosage: UNK
  3. AMBRISENTAN [Suspect]
     Active Substance: AMBRISENTAN
     Indication: PULMONARY HYPERTENSION
     Dosage: 5 MG, QD
     Route: 065
     Dates: start: 20160614
  4. AMBRISENTAN [Suspect]
     Active Substance: AMBRISENTAN
     Indication: PULMONARY HYPERTENSION
     Dosage: 10 MG, QD
     Route: 065
     Dates: start: 20180614
  5. ADEMPAS [Suspect]
     Active Substance: RIOCIGUAT
     Indication: PULMONARY HYPERTENSION
     Dosage: 2.5 MG, TID
     Route: 065
     Dates: start: 20151107
  6. UPTRAVI [Suspect]
     Active Substance: SELEXIPAG
     Dosage: 2000 ?G, BID
     Dates: start: 201808
  7. UPTRAVI [Suspect]
     Active Substance: SELEXIPAG
     Dosage: 2400 ?G, BID

REACTIONS (2)
  - Diarrhoea [Unknown]
  - Abdominal discomfort [Unknown]

NARRATIVE: CASE EVENT DATE: 20180713
